FAERS Safety Report 10112361 (Version 2)
Quarter: 2015Q1

REPORT INFORMATION
  Report Type: Spontaneous
  Country: CA (occurrence: CA)
  Receive Date: 20140425
  Receipt Date: 20150130
  Transmission Date: 20150720
  Serious: Yes (Hospitalization, Other)
  Sender: FDA-Public Use
  Company Number: CA-ABBVIE-14P-028-1226934-00

PATIENT
  Age: 45 Year
  Sex: Male
  Weight: 113 kg

DRUGS (8)
  1. HUMIRA [Suspect]
     Active Substance: ADALIMUMAB
     Indication: COLITIS ULCERATIVE
     Route: 058
  2. PREDNISONE. [Interacting]
     Active Substance: PREDNISONE
     Indication: COLITIS ULCERATIVE
     Route: 065
  3. CIPROFLOXACIN. [Interacting]
     Active Substance: CIPROFLOXACIN
     Indication: PRODUCT USED FOR UNKNOWN INDICATION
     Route: 048
  4. REMICADE [Interacting]
     Active Substance: INFLIXIMAB
     Indication: COLITIS ULCERATIVE
     Route: 042
  5. SPORANOX [Interacting]
     Active Substance: ITRACONAZOLE\SODIUM CHLORIDE
     Indication: PRODUCT USED FOR UNKNOWN INDICATION
     Route: 048
  6. SPORANOX [Interacting]
     Active Substance: ITRACONAZOLE\SODIUM CHLORIDE
     Route: 048
  7. AMPHOTERICIN [Suspect]
     Active Substance: AMPHOTERICIN B
     Indication: PRODUCT USED FOR UNKNOWN INDICATION
     Route: 065
  8. METOPROLOL [Concomitant]
     Active Substance: METOPROLOL
     Indication: PRODUCT USED FOR UNKNOWN INDICATION
     Route: 065

REACTIONS (38)
  - Drug level increased [Unknown]
  - Renal failure [Unknown]
  - Renal pain [Unknown]
  - Aspartate aminotransferase increased [Unknown]
  - Cholelithiasis [Unknown]
  - Inflammatory marker increased [Unknown]
  - Arthralgia [Unknown]
  - Drug interaction [Unknown]
  - Crepitations [Unknown]
  - Urine analysis abnormal [Unknown]
  - Pain of skin [Unknown]
  - Pyrexia [Unknown]
  - Dehydration [Unknown]
  - Gallbladder disorder [Unknown]
  - Sepsis [Unknown]
  - Feeling hot [Unknown]
  - Malaise [Unknown]
  - Immunodeficiency [Unknown]
  - Salmonellosis [Unknown]
  - Chest pain [Unknown]
  - Histoplasmosis disseminated [Unknown]
  - Alanine aminotransferase increased [Unknown]
  - Dyspnoea [Recovered/Resolved]
  - Nasal oedema [Recovered/Resolved]
  - Hyperhidrosis [Unknown]
  - Flushing [Unknown]
  - Vomiting [Not Recovered/Not Resolved]
  - Neutropenia [Unknown]
  - Bacterial infection [Unknown]
  - Fatigue [Unknown]
  - Nausea [Not Recovered/Not Resolved]
  - Adrenal insufficiency [Unknown]
  - Night sweats [Not Recovered/Not Resolved]
  - Thrombocytopenia [Unknown]
  - Lung disorder [Unknown]
  - Constipation [Unknown]
  - Atelectasis [Unknown]
  - Pharyngeal oedema [Recovered/Resolved]

NARRATIVE: CASE EVENT DATE: 2012
